FAERS Safety Report 9924680 (Version 1)
Quarter: 2014Q1

REPORT INFORMATION
  Report Type: Spontaneous
  Country: US (occurrence: None)
  Receive Date: 20140224
  Receipt Date: 20140224
  Transmission Date: 20141002
  Serious: Yes (Life-Threatening, Hospitalization)
  Sender: FDA-Public Use
  Company Number: None

PATIENT
  Age: 40 Year
  Sex: Female
  Weight: 84.1 kg

DRUGS (3)
  1. LAMOTRIGINE [Suspect]
     Indication: DEPRESSION
     Route: 048
     Dates: start: 20140122, end: 20140207
  2. NAPROXEN [Concomitant]
     Indication: DEPRESSION
     Route: 048
     Dates: start: 20140122, end: 20140207
  3. BACTRIM DS [Concomitant]

REACTIONS (7)
  - Conjunctivitis [None]
  - Visual impairment [None]
  - Dysphagia [None]
  - Stevens-Johnson syndrome [None]
  - Influenza [None]
  - Enterococcal infection [None]
  - Culture urine positive [None]
